FAERS Safety Report 10970607 (Version 1)
Quarter: 2015Q1

REPORT INFORMATION
  Report Type: Spontaneous
  Country: US (occurrence: None)
  Receive Date: 20150327
  Receipt Date: 20150327
  Transmission Date: 20150721
  Serious: Yes (Other)
  Sender: FDA-Public Use
  Company Number: 20140812

PATIENT
  Age: 47 Year
  Sex: Female

DRUGS (8)
  1. NOVO LOG (INSULIN ASPART) [Concomitant]
  2. ALPRAZOLAM. [Concomitant]
     Active Substance: ALPRAZOLAM
  3. BUSPIRONE [Concomitant]
     Active Substance: BUSPIRONE HYDROCHLORIDE
  4. INJECTAFER [Suspect]
     Active Substance: FERRIC CARBOXYMALTOSE
     Indication: PRODUCT USED FOR UNKNOWN INDICATION
     Dosage: UNDILUTED
     Route: 042
     Dates: start: 20141204, end: 20141204
  5. ESTRADIOL. [Concomitant]
     Active Substance: ESTRADIOL
  6. FLONASE [Concomitant]
     Active Substance: FLUTICASONE PROPIONATE
  7. LANTUS [Concomitant]
     Active Substance: INSULIN GLARGINE
  8. CETIRIZINE [Concomitant]
     Active Substance: CETIRIZINE HYDROCHLORIDE

REACTIONS (3)
  - Blood glucose decreased [None]
  - Hyperglycaemia [None]
  - Feeling abnormal [None]

NARRATIVE: CASE EVENT DATE: 20141204
